FAERS Safety Report 17667061 (Version 1)
Quarter: 2020Q2

REPORT INFORMATION
  Report Type: Spontaneous
  Country: US (occurrence: US)
  Receive Date: 20200414
  Receipt Date: 20200414
  Transmission Date: 20200713
  Serious: Yes (Hospitalization, Other)
  Sender: FDA-Public Use
  Company Number: US-ASTRAZENECA-2020SE49844

PATIENT
  Age: 24137 Day
  Sex: Female
  Weight: 102.5 kg

DRUGS (6)
  1. LISINOPRIL. [Concomitant]
     Active Substance: LISINOPRIL
     Indication: HYPERTENSION
     Route: 048
  2. ZYFLO [Concomitant]
     Active Substance: ZILEUTON
     Indication: DYSPNOEA
     Dosage: 600 MG 1 TO 4 DAILY AS NEEDED BUT RIGHT NOT SHE ONLY TAKES 1 A DAY
  3. DULERA INHALER [Concomitant]
     Indication: ASTHMA
  4. FASENRA [Suspect]
     Active Substance: BENRALIZUMAB
     Indication: ASTHMA
     Route: 058
     Dates: start: 201901
  5. TRULICITY [Concomitant]
     Active Substance: DULAGLUTIDE
     Indication: DIABETES MELLITUS
     Route: 058
  6. FASENRA [Suspect]
     Active Substance: BENRALIZUMAB
     Indication: ASTHMA
     Route: 058

REACTIONS (3)
  - Eye haemorrhage [Unknown]
  - Carotid artery occlusion [Recovering/Resolving]
  - Eye degenerative disorder [Unknown]

NARRATIVE: CASE EVENT DATE: 201910
